FAERS Safety Report 13413629 (Version 4)
Quarter: 2022Q3

REPORT INFORMATION
  Report Type: Spontaneous
  Country: US (occurrence: US)
  Receive Date: 20170406
  Receipt Date: 20220929
  Transmission Date: 20221027
  Serious: Yes (Other)
  Sender: FDA-Public Use
  Company Number: US-JNJFOC-20170318275

PATIENT
  Age: 3 Decade
  Sex: Male

DRUGS (24)
  1. RISPERDAL [Suspect]
     Active Substance: RISPERIDONE
     Indication: Schizophrenia
     Dosage: VARYING FREQUENCIES (UNSPECIFIED FREQUENCY AND TWICE A DAY)
     Route: 048
     Dates: start: 20090312, end: 20090319
  2. RISPERDAL [Suspect]
     Active Substance: RISPERIDONE
     Route: 048
     Dates: start: 20120406
  3. RISPERDAL [Suspect]
     Active Substance: RISPERIDONE
     Dosage: VARYING DOSES OF UNSPECIFIED AND 03 MG AND VARYING FREQUENCIES (UNSPECIFIED/01 MG QAM AND 02MG QHS)
     Route: 048
     Dates: start: 20121209, end: 20121221
  4. RISPERDAL [Suspect]
     Active Substance: RISPERIDONE
     Route: 048
     Dates: start: 20121224, end: 20131016
  5. RISPERDAL [Suspect]
     Active Substance: RISPERIDONE
     Route: 048
     Dates: start: 20130305
  6. INVEGA [Suspect]
     Active Substance: PALIPERIDONE
     Indication: Schizophrenia
     Route: 048
     Dates: start: 20090312, end: 20090319
  7. INVEGA [Suspect]
     Active Substance: PALIPERIDONE
     Indication: Psychotic disorder
     Dosage: VARYING DOSES OF 03 MG, 06 MG, 09 MG AND 12 MG VARYING FREQUENCIES (UNSPECIFIED FREQUENCY AND QD)
     Route: 048
     Dates: start: 20100525, end: 20100610
  8. INVEGA [Suspect]
     Active Substance: PALIPERIDONE
     Route: 048
     Dates: start: 20100616, end: 20100809
  9. INVEGA [Suspect]
     Active Substance: PALIPERIDONE
     Route: 048
     Dates: start: 20120406
  10. INVEGA SUSTENNA [Suspect]
     Active Substance: PALIPERIDONE PALMITATE
     Indication: Schizophrenia
     Dosage: VARYING DOSES OF UNSPECIFIED DOSE, 117 MG, 156 MG AND 234 MG
     Route: 030
     Dates: start: 20100611, end: 20120409
  11. INVEGA SUSTENNA [Suspect]
     Active Substance: PALIPERIDONE PALMITATE
  12. INVEGA SUSTENNA [Suspect]
     Active Substance: PALIPERIDONE PALMITATE
  13. RISPERIDONE [Suspect]
     Active Substance: RISPERIDONE
     Indication: Schizophrenia
     Route: 048
     Dates: start: 20090312, end: 20090319
  14. RISPERIDONE [Suspect]
     Active Substance: RISPERIDONE
     Indication: Psychotic disorder
     Dosage: VARYING DOSES INCLUDED UNSPECIFIED DOSE AND 01 MG
     Route: 048
     Dates: start: 20120406, end: 20120407
  15. RISPERIDONE [Suspect]
     Active Substance: RISPERIDONE
     Route: 048
     Dates: start: 20121210
  16. RISPERIDONE [Suspect]
     Active Substance: RISPERIDONE
     Dosage: VARYING DOSES INCLUDED UNSPECIFIED DOSE 01 MG AND 03 MG AND VARYING FREQUENCIES (UNSPECIFIED/BID)
     Route: 048
     Dates: start: 20121224, end: 20150618
  17. RISPERDAL M-TAB [Suspect]
     Active Substance: RISPERIDONE
     Indication: Product used for unknown indication
     Route: 048
  18. HALOPERIDOL [Suspect]
     Active Substance: HALOPERIDOL
     Indication: Agitation
     Route: 048
  19. HALOPERIDOL [Suspect]
     Active Substance: HALOPERIDOL
     Indication: Psychotic disorder
  20. HALDOL DECANOATE [Suspect]
     Active Substance: HALOPERIDOL DECANOATE
     Indication: Agitation
     Route: 030
  21. HALOPERIDOL [Suspect]
     Active Substance: HALOPERIDOL
     Indication: Psychotic disorder
     Route: 065
  22. LORAZEPAM [Suspect]
     Active Substance: LORAZEPAM
     Indication: Agitation
     Route: 048
  23. LORAZEPAM [Suspect]
     Active Substance: LORAZEPAM
     Indication: Agitation
     Route: 030
  24. OLANZAPINE [Suspect]
     Active Substance: OLANZAPINE
     Indication: Agitation
     Route: 065

REACTIONS (9)
  - Obesity [Unknown]
  - Emotional distress [Unknown]
  - Gynaecomastia [Unknown]
  - Drug ineffective [Unknown]
  - Sedation complication [Unknown]
  - Extrapyramidal disorder [Unknown]
  - Increased appetite [Unknown]
  - Joint noise [Unknown]
  - Treatment noncompliance [Unknown]
